FAERS Safety Report 15996251 (Version 1)
Quarter: 2019Q1

REPORT INFORMATION
  Report Type: Spontaneous
  Country: DZ (occurrence: DZ)
  Receive Date: 20190222
  Receipt Date: 20190222
  Transmission Date: 20190418
  Serious: Yes (Other)
  Sender: FDA-Public Use
  Company Number: DZ-BIOVITRUM-2018DZ0324

PATIENT
  Age: 5 Year
  Sex: Female
  Weight: 20 kg

DRUGS (3)
  1. ORFADIN [Suspect]
     Active Substance: NITISINONE
     Route: 048
     Dates: start: 20180411, end: 20180912
  2. ORFADIN [Suspect]
     Active Substance: NITISINONE
     Route: 048
     Dates: start: 20180912
  3. ORFADIN [Suspect]
     Active Substance: NITISINONE
     Indication: TYROSINAEMIA
     Dosage: 1.5 MG/KG
     Route: 048
     Dates: start: 20180306, end: 20180411

REACTIONS (7)
  - Seizure [Unknown]
  - Eye pain [Recovered/Resolved]
  - Dyskinesia [Unknown]
  - Paraesthesia [Unknown]
  - Succinylacetone increased [Unknown]
  - Thrombocytopenia [Unknown]
  - Visual impairment [Recovered/Resolved]

NARRATIVE: CASE EVENT DATE: 20180315
